FAERS Safety Report 12491222 (Version 2)
Quarter: 2016Q3

REPORT INFORMATION
  Report Type: Spontaneous
  Country: FR (occurrence: FR)
  Receive Date: 20160623
  Receipt Date: 20160914
  Transmission Date: 20161109
  Serious: Yes (Other)
  Sender: FDA-Public Use
  Company Number: FR-SUN PHARMACEUTICAL INDUSTRIES LTD-2016RR-118970

PATIENT
  Age: 53 Year
  Sex: Male

DRUGS (5)
  1. ZOPICLONE [Suspect]
     Active Substance: ZOPICLONE
     Indication: ANXIOLYTIC THERAPY
     Route: 065
  2. VENLAFAXINE [Suspect]
     Active Substance: VENLAFAXINE HYDROCHLORIDE
     Indication: ANTIDEPRESSANT THERAPY
     Route: 065
  3. RISPERIDONE. [Suspect]
     Active Substance: RISPERIDONE
     Indication: PSYCHOTHERAPY
     Route: 065
  4. LOXAPINE. [Suspect]
     Active Substance: LOXAPINE
     Indication: PSYCHOTHERAPY
     Route: 065
  5. BACLOFEN. [Suspect]
     Active Substance: BACLOFEN
     Indication: ALCOHOL WITHDRAWAL SYNDROME
     Dosage: 40 MG, DAILY
     Route: 065

REACTIONS (1)
  - Sleep apnoea syndrome [Unknown]
